FAERS Safety Report 12457351 (Version 1)
Quarter: 2016Q2

REPORT INFORMATION
  Report Type: Spontaneous
  Country: US (occurrence: US)
  Receive Date: 20160610
  Receipt Date: 20160610
  Transmission Date: 20160815
  Serious: No
  Sender: FDA-Public Use
  Company Number: US-B.I. PHARMACEUTICALS,INC./RIDGEFIELD-2016-BI-33248BP

PATIENT
  Age: 70 Year
  Sex: Female

DRUGS (2)
  1. CYCLOBENZAPRINE [Concomitant]
     Active Substance: CYCLOBENZAPRINE
     Indication: BACK PAIN
     Dosage: 5 MG
     Route: 048
     Dates: start: 2013
  2. PRADAXA [Suspect]
     Active Substance: DABIGATRAN ETEXILATE MESYLATE
     Indication: ATRIAL FIBRILLATION
     Dosage: 300 MG
     Route: 048
     Dates: start: 20160521

REACTIONS (1)
  - Back pain [Recovered/Resolved]

NARRATIVE: CASE EVENT DATE: 20160521
